FAERS Safety Report 15902288 (Version 2)
Quarter: 2019Q1

REPORT INFORMATION
  Report Type: Report from Study
  Country: DK (occurrence: DK)
  Receive Date: 20190201
  Receipt Date: 20190221
  Transmission Date: 20190417
  Serious: Yes (Death, Hospitalization, Other)
  Sender: FDA-Public Use
  Company Number: DK-REGENERON PHARMACEUTICALS, INC.-2019-13081

PATIENT

DRUGS (1)
  1. CEMIPLIMAB [Suspect]
     Active Substance: CEMIPLIMAB
     Indication: PRODUCT USED FOR UNKNOWN INDICATION
     Dosage: UNK UNK, QCY
     Route: 065
     Dates: start: 20181024

REACTIONS (6)
  - Death [Fatal]
  - Staphylococcal infection [Unknown]
  - Mucosal inflammation [Recovering/Resolving]
  - Transient ischaemic attack [Unknown]
  - Confusional state [Recovering/Resolving]
  - Intestinal perforation [Unknown]

NARRATIVE: CASE EVENT DATE: 20181025
